FAERS Safety Report 23472164 (Version 1)
Quarter: 2024Q1

REPORT INFORMATION
  Report Type: Spontaneous
  Country: US (occurrence: None)
  Receive Date: 20240202
  Receipt Date: 20240202
  Transmission Date: 20240409
  Serious: Yes (Other)
  Sender: FDA-Public Use
  Company Number: None

PATIENT
  Age: 40 Year
  Sex: Female
  Weight: 92.4 kg

DRUGS (1)
  1. MONOFERRIC [Suspect]
     Active Substance: FERRIC DERISOMALTOSE
     Indication: Iron deficiency anaemia
     Dates: start: 20231129, end: 20231129

REACTIONS (5)
  - Infusion related reaction [None]
  - Retching [None]
  - Vomiting [None]
  - Therapy cessation [None]
  - Oropharyngeal pain [None]

NARRATIVE: CASE EVENT DATE: 20231129
